FAERS Safety Report 17452434 (Version 1)
Quarter: 2020Q1

REPORT INFORMATION
  Report Type: Spontaneous
  Country: DE (occurrence: DE)
  Receive Date: 20200224
  Receipt Date: 20200224
  Transmission Date: 20200409
  Serious: Yes (Life-Threatening, Other)
  Sender: FDA-Public Use
  Company Number: NVSC2020DE030532

PATIENT
  Age: 29 Year
  Sex: Female

DRUGS (13)
  1. PACLITAXEL. [Suspect]
     Active Substance: PACLITAXEL
     Indication: BREAST CANCER
     Dosage: UNK (EVERY CYCLE)
     Route: 065
     Dates: start: 201510, end: 201604
  2. CARBOPLATIN. [Suspect]
     Active Substance: CARBOPLATIN
     Indication: PRODUCT USED FOR UNKNOWN INDICATION
     Dosage: UNK (3 CYCLES)
     Route: 065
     Dates: start: 201510, end: 201604
  3. EPIRUBICIN [Suspect]
     Active Substance: EPIRUBICIN
     Dosage: EVERY CYCLE
     Route: 065
  4. ERIBULIN [Suspect]
     Active Substance: ERIBULIN
     Indication: BREAST CANCER
     Dosage: UNK
     Route: 065
     Dates: start: 201903
  5. ENDOXAN [Suspect]
     Active Substance: CYCLOPHOSPHAMIDE
     Dosage: UNK (DOSE REDUCED)
     Route: 065
  6. CAPECITABINE. [Suspect]
     Active Substance: CAPECITABINE
     Indication: BREAST CANCER
     Dosage: UNK
     Route: 065
     Dates: start: 201709, end: 201803
  7. CARBOPLATIN. [Suspect]
     Active Substance: CARBOPLATIN
     Dosage: UNK (EVERY CYCLE)
     Route: 065
  8. ENDOXAN [Suspect]
     Active Substance: CYCLOPHOSPHAMIDE
     Indication: BREAST CANCER
     Dosage: UNK (4 CYCLES)
     Route: 065
     Dates: start: 201510, end: 201604
  9. TAMOXIFEN [Suspect]
     Active Substance: TAMOXIFEN
     Indication: BREAST CANCER
     Dosage: UNK
     Route: 048
  10. OLAPARIB. [Suspect]
     Active Substance: OLAPARIB
     Indication: BREAST CANCER
     Dosage: UNK
     Route: 048
     Dates: start: 201809, end: 201903
  11. PACLITAXEL. [Suspect]
     Active Substance: PACLITAXEL
     Dosage: UNK (DOSE REDUCED)
     Route: 065
  12. EPIRUBICIN [Suspect]
     Active Substance: EPIRUBICIN
     Indication: PRODUCT USED FOR UNKNOWN INDICATION
     Dosage: UNK (4 CYCLES)
     Route: 065
     Dates: start: 201510, end: 201604
  13. AVASTIN [Suspect]
     Active Substance: BEVACIZUMAB
     Indication: BREAST CANCER
     Dosage: UNK
     Route: 065
     Dates: start: 201709, end: 201803

REACTIONS (10)
  - Metastases to lung [Unknown]
  - Metastases to lymph nodes [Unknown]
  - Metastases to lymph nodes [Unknown]
  - Anaemia [Unknown]
  - Malignant neoplasm progression [Unknown]
  - Therapy partial responder [Unknown]
  - Toxicity to various agents [Unknown]
  - Disease recurrence [Unknown]
  - Metastases to lung [Unknown]
  - Bone marrow toxicity [Unknown]

NARRATIVE: CASE EVENT DATE: 201611
